FAERS Safety Report 11062127 (Version 1)
Quarter: 2015Q2

REPORT INFORMATION
  Report Type: Spontaneous
  Country: US (occurrence: US)
  Receive Date: 20150424
  Receipt Date: 20150424
  Transmission Date: 20150821
  Serious: Yes (Hospitalization)
  Sender: FDA-Public Use
  Company Number: US-JNJFOC-20150412661

PATIENT
  Sex: Male
  Weight: 72.58 kg

DRUGS (1)
  1. RISPERDAL [Suspect]
     Active Substance: RISPERIDONE
     Indication: COGNITIVE DISORDER
     Route: 048
     Dates: start: 2005, end: 201502

REACTIONS (3)
  - Product use issue [Unknown]
  - Aggression [Recovered/Resolved]
  - Alcohol problem [Recovered/Resolved]

NARRATIVE: CASE EVENT DATE: 201502
